FAERS Safety Report 24670468 (Version 1)
Quarter: 2024Q4

REPORT INFORMATION
  Report Type: Spontaneous
  Country: US (occurrence: None)
  Receive Date: 20241126
  Receipt Date: 20241126
  Transmission Date: 20250114
  Serious: No
  Sender: Public
  Company Number: None

PATIENT
  Age: 83 Year
  Sex: Female

DRUGS (1)
  1. BENZONATATE [Suspect]
     Active Substance: BENZONATATE
     Indication: Cough
     Dosage: FREQUENCY : 3 TIMES A DAY;?
     Route: 048

REACTIONS (5)
  - Hypoaesthesia [None]
  - Dyspnoea [None]
  - Fall [None]
  - Wrong technique in product usage process [None]
  - COVID-19 [None]

NARRATIVE: CASE EVENT DATE: 20241119
